FAERS Safety Report 5311003-7 (Version None)
Quarter: 2007Q2

REPORT INFORMATION
  Report Type: 
  Country: None (occurrence: None)
  Receive Date: 20070423
  Receipt Date: 20070413
  Transmission Date: 20071010
  Serious: Yes (Hospitalization)
  Sender: FDA-Public Use
  Company Number: 6032116

PATIENT
  Age: 50 Year
  Sex: Female

DRUGS (3)
  1. LODOZ (TABLET) (HYDROCHLOROTHIAZIDE, BISAPROLOL FUMARATE) [Suspect]
     Indication: HYPERTENSION
     Dosage: 1 DOSAGE FORMS (1 DOSAGE FORMS, 1 D); ORAL
     Dates: start: 20070125, end: 20070222
  2. COMBIVIR [Suspect]
     Indication: ACQUIRED IMMUNODEFICIENCY SYNDROME
     Dosage: 2 DOSAGE FORMS (2 DOSAGE FORMS, 1 D), ORAL
     Route: 048
     Dates: start: 20070224
  3. KALETRA [Suspect]
     Indication: CHRONIC HEPATITIS
     Dosage: 2 DOSAGE FORMS (2 DOSAGE FORMS, 1 D); ORAL
     Route: 048
     Dates: start: 20070224

REACTIONS (2)
  - BLOOD CREATINE PHOSPHOKINASE INCREASED [None]
  - LEFT VENTRICULAR HYPERTROPHY [None]
